FAERS Safety Report 19486335 (Version 1)
Quarter: 2021Q3

REPORT INFORMATION
  Report Type: Spontaneous
  Country: IN (occurrence: IN)
  Receive Date: 20210702
  Receipt Date: 20210702
  Transmission Date: 20211014
  Serious: Yes (Other)
  Sender: FDA-Public Use
  Company Number: IN-ACCORD-229970

PATIENT
  Age: 21 Year
  Sex: Male

DRUGS (2)
  1. VALPROIC ACID. [Interacting]
     Active Substance: VALPROIC ACID
     Indication: JUVENILE ABSENCE EPILEPSY
  2. METHOTREXATE. [Suspect]
     Active Substance: METHOTREXATE
     Indication: PSORIASIS
     Dosage: TAKEN ONE DAY OF THE WEEK

REACTIONS (3)
  - Drug level decreased [Unknown]
  - Epilepsy [Recovered/Resolved]
  - Drug interaction [Unknown]
